FAERS Safety Report 5458134-9 (Version None)
Quarter: 2007Q3

REPORT INFORMATION
  Report Type: 
  Country: None (occurrence: None)
  Receive Date: 20070917
  Receipt Date: 20070903
  Transmission Date: 20080115
  Serious: Yes (Hospitalization)
  Sender: FDA-Public Use
  Company Number: 6037615

PATIENT
  Age: 76 Year
  Sex: Male

DRUGS (3)
  1. LODOZ 5 MG/6.25 MG (TABLET) (HYDROCHLOROTHIAZIDE, BISOPRDLOL FUMARATE) [Suspect]
     Indication: HYPERTENSION
     Dosage: 5 MG (5 MG, 1 IN 1 D), ORAL
     Route: 048
     Dates: end: 20070710
  2. APROVEL (150 MG, TABLET) (IRBESARTAN) [Concomitant]
  3. KARDEGIC (75 MG, POWDER FOR ORAL SOLUTION) (ACETYLSALICYLATE LYSINE) [Concomitant]

REACTIONS (10)
  - ASTHENIA [None]
  - ATRIOVENTRICULAR BLOCK FIRST DEGREE [None]
  - BRADYCARDIA [None]
  - BUNDLE BRANCH BLOCK RIGHT [None]
  - CEREBROVASCULAR INSUFFICIENCY [None]
  - CONFUSIONAL STATE [None]
  - HYPOTENSION [None]
  - LOSS OF CONSCIOUSNESS [None]
  - TONIC CLONIC MOVEMENTS [None]
  - VERTIGO [None]
